FAERS Safety Report 8924920 (Version 2)
Quarter: 2013Q1

REPORT INFORMATION
  Report Type: Spontaneous
  Country: DE (occurrence: DE)
  Receive Date: 20121126
  Receipt Date: 20130228
  Transmission Date: 20140127
  Serious: Yes (Death)
  Sender: FDA-Public Use
  Company Number: DE-PFIZER INC-2012294861

PATIENT
  Sex: Male

DRUGS (3)
  1. MORPHINE SULFATE [Suspect]
     Indication: DYSPNOEA
     Dosage: 10MG, INFUSED OVER A PERIOD OF 20 MIN.
     Route: 042
  2. DORMICUM /AUS/ [Suspect]
     Dosage: 1-2 MG, UNK
  3. MIDAZOLAM [Suspect]
     Dosage: UNK

REACTIONS (3)
  - Off label use [Fatal]
  - Death [Fatal]
  - Medication error [Fatal]
